FAERS Safety Report 14776816 (Version 1)
Quarter: 2018Q2

REPORT INFORMATION
  Report Type: Spontaneous
  Country: MX (occurrence: MX)
  Receive Date: 20180419
  Receipt Date: 20180419
  Transmission Date: 20180711
  Serious: Yes (Other)
  Sender: FDA-Public Use
  Company Number: MX-ALKEM LABORATORIES LIMITED-MX-ALKEM-2018-00230

PATIENT
  Age: 7 Year
  Sex: Male

DRUGS (7)
  1. RIFAMPICIN [Suspect]
     Active Substance: RIFAMPIN
     Indication: MYCOBACTERIAL INFECTION
     Dosage: 10 MG/KG, BID
     Route: 065
     Dates: start: 201211
  2. AMIKACIN. [Concomitant]
     Active Substance: AMIKACIN
     Indication: MYCOBACTERIAL INFECTION
     Dosage: 10 MG/KG, BID
     Dates: start: 201211
  3. PYRAZINAMIDE. [Suspect]
     Active Substance: PYRAZINAMIDE
     Indication: MYCOBACTERIAL INFECTION
     Dosage: UNK
     Route: 065
  4. ISONIAZID. [Suspect]
     Active Substance: ISONIAZID
     Indication: MYCOBACTERIAL INFECTION
     Dosage: UNK
     Route: 065
  5. CLARITHROMYCIN. [Concomitant]
     Active Substance: CLARITHROMYCIN
     Indication: MYCOBACTERIAL INFECTION
     Dosage: 10 MG/KG, BID
     Route: 048
     Dates: start: 201211
  6. LINEZOLID. [Suspect]
     Active Substance: LINEZOLID
     Indication: MYCOBACTERIAL INFECTION
     Dosage: 10 MG/KG, BID
     Route: 048
     Dates: start: 201211, end: 201306
  7. RIFAMPICIN [Suspect]
     Active Substance: RIFAMPIN
     Indication: MYCOBACTERIAL INFECTION
     Dosage: UNK
     Route: 048

REACTIONS (2)
  - Optic neuritis [Recovering/Resolving]
  - Drug ineffective [Unknown]
